FAERS Safety Report 4308671-5 (Version None)
Quarter: 2004Q1

REPORT INFORMATION
  Report Type: 
  Country: None (occurrence: None)
  Receive Date: 20040301
  Receipt Date: 20040301
  Transmission Date: 20041129
  Serious: Yes (Other)
  Sender: FDA-Public Use
  Company Number: None

PATIENT
  Age: 49 Year
  Sex: Male
  Weight: 63.05 kg

DRUGS (2)
  1. COLD-EEZE [Suspect]
     Indication: NASOPHARYNGITIS
     Dosage: 1 SPRAY 2-3 HOURS NASAL
     Route: 045
  2. COLD-EEZE [Suspect]
     Indication: PHARYNGOLARYNGEAL PAIN
     Dosage: 1 SPRAY 2-3 HOURS NASAL
     Route: 045

REACTIONS (1)
  - ANOSMIA [None]
